FAERS Safety Report 6137147-8 (Version None)
Quarter: 2009Q1

REPORT INFORMATION
  Report Type: 
  Country: None (occurrence: None)
  Receive Date: 20090326
  Receipt Date: 20090317
  Transmission Date: 20090719
  Serious: Yes (Hospitalization)
  Sender: FDA-Public Use
  Company Number: 2009001981

PATIENT
  Sex: Female

DRUGS (1)
  1. PROVIGIL [Suspect]
     Dosage: ORAL
     Route: 048

REACTIONS (3)
  - CEREBROVASCULAR ACCIDENT [None]
  - CLOSTRIDIAL INFECTION [None]
  - DISEASE RECURRENCE [None]
